FAERS Safety Report 20886080 (Version 3)
Quarter: 2022Q2

REPORT INFORMATION
  Report Type: Report from Study
  Country: US (occurrence: US)
  Receive Date: 20220527
  Receipt Date: 20220630
  Transmission Date: 20220721
  Serious: Yes (Hospitalization, Other)
  Sender: FDA-Public Use
  Company Number: US-TAKEDA-2022TUS035739

PATIENT
  Age: 74 Year
  Sex: Male

DRUGS (2)
  1. MARIBAVIR [Suspect]
     Active Substance: MARIBAVIR
     Indication: Cytomegalovirus infection
     Dosage: UNK
     Route: 065
     Dates: start: 20220306, end: 20220421
  2. MARIBAVIR [Suspect]
     Active Substance: MARIBAVIR
     Dosage: 400 MILLIGRAM, BID
     Route: 048
     Dates: start: 20220508

REACTIONS (4)
  - Condition aggravated [Recovering/Resolving]
  - Hospitalisation [Not Recovered/Not Resolved]
  - Pulmonary oedema [Unknown]
  - Therapy interrupted [Recovered/Resolved]

NARRATIVE: CASE EVENT DATE: 20220421
